FAERS Safety Report 17235747 (Version 1)
Quarter: 2020Q1

REPORT INFORMATION
  Report Type: Spontaneous
  Country: US (occurrence: US)
  Receive Date: 20200103
  Receipt Date: 20200103
  Transmission Date: 20200409
  Serious: Yes (Life-Threatening)
  Sender: FDA-Public Use
  Company Number: None

PATIENT
  Age: 37 Year
  Sex: Female
  Weight: 90 kg

DRUGS (8)
  1. LYRICA [Suspect]
     Active Substance: PREGABALIN
     Indication: RELAPSING-REMITTING MULTIPLE SCLEROSIS
  2. VENLAFAXINE [Concomitant]
     Active Substance: VENLAFAXINE HYDROCHLORIDE
  3. TYSABRI [Concomitant]
     Active Substance: NATALIZUMAB
  4. LYRICA [Suspect]
     Active Substance: PREGABALIN
     Indication: FIBROMYALGIA
  5. GABAPENTIN. [Concomitant]
     Active Substance: GABAPENTIN
  6. LYRICA [Suspect]
     Active Substance: PREGABALIN
     Indication: ANXIETY
  7. BACLOFEN. [Concomitant]
     Active Substance: BACLOFEN
  8. VITAMIN D [Concomitant]
     Active Substance: VITAMIN D NOS

REACTIONS (5)
  - Confusional state [None]
  - Mental disorder [None]
  - Inability to afford medication [None]
  - Drug withdrawal syndrome [None]
  - Antisocial behaviour [None]

NARRATIVE: CASE EVENT DATE: 20150701
